FAERS Safety Report 6474499-3 (Version None)
Quarter: 2009Q4

REPORT INFORMATION
  Report Type: 
  Country: None (occurrence: None)
  Receive Date: 20091204
  Receipt Date: 20091127
  Transmission Date: 20100525
  Serious: Yes (Other)
  Sender: FDA-Public Use
  Company Number: CH-ASTRAZENECA-2009SE29250

PATIENT
  Sex: Female

DRUGS (2)
  1. SYMBICORT [Suspect]
     Route: 055
  2. YASMINELLE [Concomitant]
     Indication: ORAL CONTRACEPTION
     Dosage: 1X/ DAY
     Route: 048
     Dates: start: 20080501

REACTIONS (1)
  - DRUG EXPOSURE DURING PREGNANCY [None]
